FAERS Safety Report 25462713 (Version 1)
Quarter: 2025Q2

REPORT INFORMATION
  Report Type: Spontaneous
  Country: US (occurrence: None)
  Receive Date: 20250611
  Receipt Date: 20250611
  Transmission Date: 20250716
  Serious: Yes (Other)
  Sender: FDA-CTU
  Company Number: None

PATIENT
  Age: 63 Year
  Sex: Male
  Weight: 92.08 kg

DRUGS (5)
  1. WALGREENS STERILE SOOTHING EYE WASH [Suspect]
     Active Substance: WATER
     Indication: Dry eye
     Route: 059
     Dates: start: 20250610, end: 20250611
  2. LEVOTHYROXINE [Concomitant]
     Active Substance: LEVOTHYROXINE
  3. UNSPECIFIED INGREDIENT [Concomitant]
     Active Substance: UNSPECIFIED INGREDIENT
  4. DESCOVY [Concomitant]
     Active Substance: EMTRICITABINE\TENOFOVIR ALAFENAMIDE FUMARATE
  5. NAPROXEN [Concomitant]
     Active Substance: NAPROXEN

REACTIONS (1)
  - Eye contusion [None]

NARRATIVE: CASE EVENT DATE: 20250610
